FAERS Safety Report 19289397 (Version 6)
Quarter: 2022Q1

REPORT INFORMATION
  Report Type: Report from Study
  Country: FR (occurrence: FR)
  Receive Date: 20210522
  Receipt Date: 20220321
  Transmission Date: 20220423
  Serious: Yes (Hospitalization, Other)
  Sender: FDA-Public Use
  Company Number: FR-TAKEDA-2021TUS032583

PATIENT
  Age: 53 Year
  Sex: Female

DRUGS (29)
  1. TEDUGLUTIDE [Suspect]
     Active Substance: TEDUGLUTIDE
     Indication: Short-bowel syndrome
     Dosage: 3.2 MILLIGRAM, QD
     Route: 065
     Dates: start: 20201016, end: 20210914
  2. TEDUGLUTIDE [Suspect]
     Active Substance: TEDUGLUTIDE
     Indication: Short-bowel syndrome
     Dosage: 3.2 MILLIGRAM, QD
     Route: 065
     Dates: start: 20201016, end: 20210914
  3. TEDUGLUTIDE [Suspect]
     Active Substance: TEDUGLUTIDE
     Indication: Short-bowel syndrome
     Dosage: 3.2 MILLIGRAM, QD
     Route: 065
     Dates: start: 20201016, end: 20210914
  4. TEDUGLUTIDE [Suspect]
     Active Substance: TEDUGLUTIDE
     Indication: Short-bowel syndrome
     Dosage: 3.2 MILLIGRAM, QD
     Route: 065
     Dates: start: 20201016, end: 20210914
  5. TEDUGLUTIDE [Suspect]
     Active Substance: TEDUGLUTIDE
     Dosage: 3.2 MILLIGRAM, QD
     Route: 065
     Dates: start: 20211018, end: 20211206
  6. TEDUGLUTIDE [Suspect]
     Active Substance: TEDUGLUTIDE
     Dosage: 3.2 MILLIGRAM, QD
     Route: 065
     Dates: start: 20211018, end: 20211206
  7. TEDUGLUTIDE [Suspect]
     Active Substance: TEDUGLUTIDE
     Dosage: 3.2 MILLIGRAM, QD
     Route: 065
     Dates: start: 20211018, end: 20211206
  8. TEDUGLUTIDE [Suspect]
     Active Substance: TEDUGLUTIDE
     Dosage: 3.2 MILLIGRAM, QD
     Route: 065
     Dates: start: 20211018, end: 20211206
  9. NICOTINE [Concomitant]
     Active Substance: NICOTINE
     Indication: Tobacco user
     Dosage: 2.0 MILLIGRAM, QD
     Route: 062
  10. VALPORATE CHRONO [Concomitant]
     Indication: Affective disorder
     Dosage: 250 MILLIGRAM, TID
     Route: 048
     Dates: start: 202012
  11. VENLAFAXINE [Concomitant]
     Active Substance: VENLAFAXINE HYDROCHLORIDE
     Indication: Affective disorder
     Dosage: 37.50 MILLIGRAM, QD
     Route: 048
     Dates: start: 202012
  12. ACETAMINOPHEN [Concomitant]
     Active Substance: ACETAMINOPHEN
     Indication: Product used for unknown indication
     Route: 065
  13. NICORETTE [Concomitant]
     Active Substance: NICOTINE
     Indication: Tobacco user
     Dosage: 2.00 MILLIGRAM, QD
     Route: 048
     Dates: end: 20210720
  14. DEPAKOTE [Concomitant]
     Active Substance: DIVALPROEX SODIUM
     Indication: Affective disorder
     Dosage: 250 MILLIGRAM, TID
     Route: 048
     Dates: start: 202012
  15. CALCIUM [Concomitant]
     Active Substance: CALCIUM
     Indication: Calcium deficiency
     Dosage: 50 MILLIGRAM, BID
     Route: 048
     Dates: start: 20210720
  16. CALCIUM [Concomitant]
     Active Substance: CALCIUM
     Indication: Short-bowel syndrome
  17. CALCIUM [Concomitant]
     Active Substance: CALCIUM
     Indication: Prophylaxis
  18. CHOLECALCIFEROL [Concomitant]
     Active Substance: CHOLECALCIFEROL
     Indication: Vitamin D deficiency
     Dosage: 1 DOSAGE FORM, MONTHLY
     Route: 048
     Dates: start: 20210901
  19. Alvityl vitalite [Concomitant]
     Indication: Hypovitaminosis
     Dosage: 1 DOSAGE FORM, QD
     Route: 048
     Dates: start: 20210909, end: 202112
  20. LANSOPRAZOLE [Concomitant]
     Active Substance: LANSOPRAZOLE
     Indication: Gastrooesophageal reflux disease
     Dosage: 30 MILLIGRAM, QD
     Route: 048
     Dates: start: 20220214
  21. ZINC GLUCONATE [Concomitant]
     Active Substance: ZINC GLUCONATE
     Indication: Zinc deficiency
     Dosage: 1 DOSAGE FORM, QD
     Route: 048
     Dates: start: 20210913
  22. ZINC GLUCONATE [Concomitant]
     Active Substance: ZINC GLUCONATE
     Indication: Prophylaxis
  23. ZINC GLUCONATE [Concomitant]
     Active Substance: ZINC GLUCONATE
     Indication: Short-bowel syndrome
  24. SELENIUM [Concomitant]
     Active Substance: SELENIUM
     Indication: Selenium deficiency
     Dosage: UNK
     Route: 048
     Dates: start: 20210913
  25. SELENIUM [Concomitant]
     Active Substance: SELENIUM
     Indication: Short-bowel syndrome
  26. SELENIUM [Concomitant]
     Active Substance: SELENIUM
     Indication: Prophylaxis
  27. VITAMIN A [Concomitant]
     Active Substance: VITAMIN A
     Indication: Vitamin A deficiency
     Dosage: UNK UNK, TID
     Route: 048
     Dates: start: 20210913
  28. VITAMIN A [Concomitant]
     Active Substance: VITAMIN A
     Indication: Short-bowel syndrome
  29. VITAMIN A [Concomitant]
     Active Substance: VITAMIN A
     Indication: Prophylaxis

REACTIONS (3)
  - Nephrolithiasis [Recovered/Resolved]
  - Depression [Recovered/Resolved]
  - Abdominal pain [Recovered/Resolved]

NARRATIVE: CASE EVENT DATE: 20201125
